FAERS Safety Report 7172239-6 (Version None)
Quarter: 2010Q4

REPORT INFORMATION
  Report Type: 
  Country: None (occurrence: None)
  Receive Date: 20101217
  Receipt Date: 20100203
  Transmission Date: 20110411
  Serious: No
  Sender: FDA-Public Use
  Company Number: US-AMGEN-KDL390434

PATIENT

DRUGS (2)
  1. ENBREL [Suspect]
     Indication: RHEUMATOID ARTHRITIS
     Dosage: 50 MG, QWK
     Route: 058
     Dates: start: 20100119
  2. METHOTREXATE [Concomitant]
     Dosage: 17.5 MG, QWK
     Route: 048
     Dates: start: 20090901

REACTIONS (1)
  - INJECTION SITE PAIN [None]
